FAERS Safety Report 16516620 (Version 1)
Quarter: 2019Q3

REPORT INFORMATION
  Report Type: Spontaneous
  Country: US (occurrence: US)
  Receive Date: 20190522
  Receipt Date: 20190522
  Transmission Date: 20191004
  Serious: Yes (Hospitalization)
  Sender: FDA-Public Use
  Company Number: None

PATIENT
  Sex: Female

DRUGS (18)
  1. FEROSUL TAB 325 MG [Concomitant]
  2. ALPRAZOLAM TAB 1MG [Concomitant]
  3. VITAMIN D3 [Concomitant]
     Active Substance: CHOLECALCIFEROL
  4. DOK CAP 100MG [Concomitant]
  5. GABAPENTIN CAP 300MG [Concomitant]
     Active Substance: GABAPENTIN
  6. CYANOCOBALAM INJ 1000MCG [Concomitant]
  7. 3ML LL SYRING MIS 25GX1 [Concomitant]
  8. FORTEO [Suspect]
     Active Substance: TERIPARATIDE
     Indication: PRODUCT USED FOR UNKNOWN INDICATION
     Route: 058
     Dates: start: 20190228
  9. OXYCODONE TAB 5MG [Concomitant]
     Active Substance: OXYCODONE
  10. TIZANIDINE TAB 4MG [Concomitant]
  11. LIDOCAINE PAD 5% [Concomitant]
  12. DICLOFENAC GEL 1% [Concomitant]
     Active Substance: DICLOFENAC
  13. VALACYCLOVIR TAB 1 GM [Concomitant]
     Active Substance: VALACYCLOVIR HYDROCHLORIDE
  14. PANTOPRAZOLE TAB 40MG [Concomitant]
  15. SUMATRIPTAN TAB 100MG [Concomitant]
  16. FLUOXETINE CAP 20MG [Concomitant]
  17. ZOLPIDEM TAB 10MG [Concomitant]
  18. VIIBRYD TAB 20MG [Concomitant]

REACTIONS (2)
  - Road traffic accident [None]
  - Therapy cessation [None]

NARRATIVE: CASE EVENT DATE: 20190320
